FAERS Safety Report 10170559 (Version 2)
Quarter: 2014Q2

REPORT INFORMATION
  Report Type: Spontaneous
  Country: PL (occurrence: PL)
  Receive Date: 20140513
  Receipt Date: 20140524
  Transmission Date: 20141212
  Serious: Yes (Death)
  Sender: FDA-Public Use
  Company Number: PHHY2014PL057574

PATIENT
  Sex: Female

DRUGS (1)
  1. EXELON PATCH [Suspect]
     Dosage: 9.5 MG/24 H
     Route: 062

REACTIONS (4)
  - Death [Fatal]
  - Ecchymosis [Unknown]
  - Urticaria [Unknown]
  - Skin reaction [Unknown]
